FAERS Safety Report 4929626-3 (Version None)
Quarter: 2006Q1

REPORT INFORMATION
  Report Type: 
  Country: None (occurrence: None)
  Receive Date: 20060223
  Receipt Date: 20060210
  Transmission Date: 20060701
  Serious: Yes (Hospitalization, Other)
  Sender: FDA-Public Use
  Company Number: 2006008524

PATIENT
  Age: 68 Year
  Sex: Female
  Weight: 58.6955 kg

DRUGS (16)
  1. SUTENT [Suspect]
     Indication: ILL-DEFINED DISORDER
     Dosage: 50 MG (50 MG, 1 IN 1 D), ORAL
     Route: 048
     Dates: start: 20060110
  2. HYDROCHLOROTHIAZIDE [Suspect]
     Indication: HYPERTENSION
     Dosage: 250 MG (125 MG, 2 IN 1 D), ORAL
     Route: 048
     Dates: start: 20040512, end: 20060117
  3. ATENOLOL [Concomitant]
  4. CALCIUM (CALCIUM) [Concomitant]
  5. DEMECLOCYCLINE HCL [Concomitant]
  6. FERROUS GLUCONATE (FERROUS GLUCONATE) [Concomitant]
  7. MEDROL [Concomitant]
  8. MULTIVITAMIN [Concomitant]
  9. POTASSIUM CHLORIDE [Concomitant]
  10. PRINIVIL [Concomitant]
  11. TRICOR [Concomitant]
  12. TYLENOL PM (DIPHENHYDRAMINE, PARACETAMOL) [Concomitant]
  13. ZOCOR [Concomitant]
  14. SODIUM CHLORIDE 0.9% [Concomitant]
  15. ASPIRIN [Concomitant]
  16. HYDROCHLOROTHIAZIDE [Concomitant]

REACTIONS (3)
  - GASTRITIS [None]
  - GASTROOESOPHAGEAL REFLUX DISEASE [None]
  - HYPONATRAEMIA [None]
